FAERS Safety Report 15636847 (Version 1)
Quarter: 2018Q4

REPORT INFORMATION
  Report Type: Spontaneous
  Country: US (occurrence: US)
  Receive Date: 20181114
  Receipt Date: 20181114
  Transmission Date: 20190205
  Serious: Yes (Life-Threatening, Hospitalization)
  Sender: FDA-Public Use
  Company Number: None

PATIENT
  Age: 70 Year
  Sex: Female

DRUGS (1)
  1. CAPECITABINE TAB 500MG [Suspect]
     Active Substance: CAPECITABINE
     Indication: BREAST CANCER FEMALE
     Dates: start: 201810, end: 201811

REACTIONS (10)
  - Nausea [None]
  - Pain in jaw [None]
  - Chills [None]
  - Toxicity to various agents [None]
  - Diarrhoea [None]
  - Chest pain [None]
  - Oropharyngeal pain [None]
  - Myocardial infarction [None]
  - Retching [None]
  - Hyperhidrosis [None]

NARRATIVE: CASE EVENT DATE: 20181110
